FAERS Safety Report 16378160 (Version 3)
Quarter: 2019Q3

REPORT INFORMATION
  Report Type: Report from Study
  Country: JP (occurrence: JP)
  Receive Date: 20190531
  Receipt Date: 20190813
  Transmission Date: 20191004
  Serious: Yes (Hospitalization)
  Sender: FDA-Public Use
  Company Number: JP-CONCORDIA PHARMACEUTICALS INC.-E2B_00019917

PATIENT
  Age: 82 Year
  Sex: Male

DRUGS (6)
  1. BELSOMRA [Concomitant]
     Active Substance: SUVOREXANT
  2. ARICEPT [Concomitant]
     Active Substance: DONEPEZIL HYDROCHLORIDE
     Route: 048
  3. MENESIT [Concomitant]
     Active Substance: CARBIDOPA\LEVODOPA
  4. ZONISAMIDE CAPSULE [Suspect]
     Active Substance: ZONISAMIDE
     Indication: DEMENTIA WITH LEWY BODIES
     Route: 048
     Dates: start: 20190405, end: 20190425
  5. ZONISAMIDE CAPSULE [Suspect]
     Active Substance: ZONISAMIDE
     Indication: PARKINSONISM
  6. LEVODOPA [Concomitant]
     Active Substance: LEVODOPA

REACTIONS (1)
  - Pneumonia [Recovered/Resolved]

NARRATIVE: CASE EVENT DATE: 20190426
